FAERS Safety Report 10384726 (Version 1)
Quarter: 2014Q1

REPORT INFORMATION
  Report Type: Spontaneous
  Country: US (occurrence: None)
  Receive Date: 20140306
  Receipt Date: 20140306
  Transmission Date: 20141002
  Serious: Yes (Hospitalization)
  Sender: FDA-Public Use
  Company Number: 163-21880-13120593

PATIENT
  Age: 78 Year
  Sex: Female

DRUGS (4)
  1. REVLIMID (LENALIDOMIDE) (CAPSULES) [Suspect]
     Indication: PLASMA CELL MYELOMA
     Dosage: 10 MG, 21 IN 21 D, PO?TEMPORARILY INTERRUPTED
     Route: 048
     Dates: start: 20080829
  2. DEXAMETHASONE (DEXAMETHASONE) [Concomitant]
  3. ASPIRIN LOW DOSE [Concomitant]
  4. BENADRYL ALLERGY (BENADRYL ALLERGY) [Concomitant]

REACTIONS (1)
  - Appendicitis [None]
